FAERS Safety Report 4044901 (Version 3)
Quarter: 2020Q3

REPORT INFORMATION
  Report Type: Report from Study
  Country: US (occurrence: US)
  Receive Date: 20031208
  Receipt Date: 20041227
  Transmission Date: 20201104
  Serious: Yes (Other)
  Sender: FDA-Public Use
  Company Number: US-JNJFOC-20031200123

PATIENT
  Age: 63 Year
  Sex: Male
  Weight: 72.58 kg

DRUGS (2)
  1. CISAPRIDE [Suspect]
     Active Substance: CISAPRIDE
     Indication: GASTROOESOPHAGEAL REFLUX DISEASE
     Route: 049
  2. CISAPRIDE [Suspect]
     Active Substance: CISAPRIDE
     Route: 049

REACTIONS (2)
  - Sinus bradycardia [Not Recovered/Not Resolved]
  - Electrocardiogram QT prolonged [None]

NARRATIVE: CASE EVENT DATE: 20031014
